FAERS Safety Report 9425883 (Version 2)
Quarter: 2013Q3

REPORT INFORMATION
  Report Type: Report from Study
  Country: GB (occurrence: GB)
  Receive Date: 20130729
  Receipt Date: 20130830
  Transmission Date: 20140515
  Serious: Yes (Life-Threatening, Hospitalization, Disabling, Other)
  Sender: FDA-Public Use
  Company Number: GB-EXELIXIS-XL18413002965

PATIENT
  Age: 69 Year
  Sex: Male
  Weight: 82.7 kg

DRUGS (23)
  1. XL184 [Suspect]
     Indication: PROSTATE CANCER
     Dosage: 60 MG, QD
     Route: 048
     Dates: start: 20121218, end: 20130122
  2. XL184 [Suspect]
     Dosage: 40 MG, QD
     Route: 048
     Dates: start: 20130206, end: 20130319
  3. XL184 [Suspect]
     Dosage: 40 MG, QD
     Route: 048
     Dates: start: 20130425, end: 20130705
  4. XL184 [Suspect]
     Indication: PROSTATE CANCER
     Dosage: 5 MG, BID
     Route: 048
     Dates: start: 20121218, end: 20130705
  5. SIMVASTATIN [Concomitant]
  6. CANDESARTAN [Concomitant]
  7. FLUOXETINE [Concomitant]
  8. DICLOFENAC [Concomitant]
  9. PARACETAMOL [Concomitant]
  10. OMEPRAZOLE [Concomitant]
  11. PREDNISOLONE [Concomitant]
  12. TAMSULOSIN [Concomitant]
  13. ZOMORPH [Concomitant]
  14. ORAMORPH [Concomitant]
  15. TIMOLOL [Concomitant]
  16. DECAPEPTYL [Concomitant]
  17. CLOBETASONE [Concomitant]
  18. MOVICOL [Concomitant]
  19. ANUSOL [Concomitant]
  20. DIFFLAM [Concomitant]
  21. DOMPERIDONE [Concomitant]
  22. CORSODYL [Concomitant]
  23. COLECALCIFEROL [Concomitant]

REACTIONS (3)
  - Anaemia [Not Recovered/Not Resolved]
  - Diarrhoea [Recovered/Resolved]
  - Gastrointestinal haemorrhage [Unknown]
